FAERS Safety Report 22360771 (Version 1)
Quarter: 2023Q2

REPORT INFORMATION
  Report Type: Spontaneous
  Country: US (occurrence: None)
  Receive Date: 20230523
  Receipt Date: 20230523
  Transmission Date: 20230721
  Serious: No
  Sender: FDA-Public Use
  Company Number: None

PATIENT
  Sex: Female

DRUGS (12)
  1. IBRANCE [Suspect]
     Active Substance: PALBOCICLIB
     Indication: Breast cancer female
     Dosage: FREQUENCY : DAILY;?
     Route: 048
  2. PROAIR HFA INHALATION [Concomitant]
  3. TRIAMCINOLONE ACETONIDE [Concomitant]
  4. VITAMIN D3 [Concomitant]
  5. VITAMIN C [Concomitant]
  6. MULTIPLEVITAMIN [Concomitant]
  7. EVEROLIMUS [Concomitant]
  8. EXEMESTANE [Concomitant]
  9. MAGNESIUM [Concomitant]
  10. K2-D3 5000 [Concomitant]
  11. ALEVE [Concomitant]
  12. ANASTROZOLE [Concomitant]

REACTIONS (2)
  - Breast cancer female [None]
  - Malignant neoplasm progression [None]
